FAERS Safety Report 23007041 (Version 2)
Quarter: 2023Q4

REPORT INFORMATION
  Report Type: Spontaneous
  Country: JP (occurrence: JP)
  Receive Date: 20230929
  Receipt Date: 20231106
  Transmission Date: 20240110
  Serious: Yes (Other)
  Sender: FDA-Public Use
  Company Number: JP-BEH-2023163590

PATIENT
  Age: 4 Year
  Sex: Female
  Weight: 16.5 kg

DRUGS (10)
  1. HUMAN IMMUNOGLOBULIN G [Suspect]
     Active Substance: HUMAN IMMUNOGLOBULIN G
     Indication: Pyrexia
     Dosage: 1000 MILLIGRAM/KILOGRAM, QD
     Route: 042
  2. HUMAN IMMUNOGLOBULIN G [Suspect]
     Active Substance: HUMAN IMMUNOGLOBULIN G
     Indication: Dysuria
     Dosage: 1900 MILLIGRAM/KILOGRAM
     Route: 042
  3. HUMAN IMMUNOGLOBULIN G [Suspect]
     Active Substance: HUMAN IMMUNOGLOBULIN G
     Indication: Hyperreflexia
  4. HUMAN IMMUNOGLOBULIN G [Suspect]
     Active Substance: HUMAN IMMUNOGLOBULIN G
     Indication: Encephalomyelitis
  5. CLARITHROMYCIN [Concomitant]
     Active Substance: CLARITHROMYCIN
  6. MEROPENEM [Concomitant]
     Active Substance: MEROPENEM
     Route: 042
  7. CEFOTAXIME [Concomitant]
     Active Substance: CEFOTAXIME SODIUM
  8. ACYCLOVIR [Concomitant]
     Active Substance: ACYCLOVIR
  9. METHYLPREDNISOLONE [Concomitant]
     Active Substance: METHYLPREDNISOLONE
     Dosage: 30 MILLIGRAM/KILOGRAM, QD
     Route: 042
  10. PREDNISOLONE [Concomitant]
     Active Substance: PREDNISOLONE
     Dosage: 1.9 MILLIGRAM/KILOGRAM, QD

REACTIONS (4)
  - Headache [Unknown]
  - Meningitis aseptic [Unknown]
  - No adverse event [Unknown]
  - Off label use [Unknown]
